FAERS Safety Report 13736215 (Version 1)
Quarter: 2017Q3

REPORT INFORMATION
  Report Type: Spontaneous
  Country: JP (occurrence: JP)
  Receive Date: 20170710
  Receipt Date: 20170710
  Transmission Date: 20171127
  Serious: Yes (Death, Other)
  Sender: FDA-Public Use
  Company Number: JP-BAYER-2014-149597

PATIENT
  Age: 77 Year
  Sex: Male
  Weight: 79.82 kg

DRUGS (4)
  1. XARELTO [Interacting]
     Active Substance: RIVAROXABAN
     Indication: ANTICOAGULANT THERAPY
     Dosage: 15 MG, DAILY
     Route: 048
     Dates: start: 20140613
  2. XARELTO [Interacting]
     Active Substance: RIVAROXABAN
     Indication: THROMBOSIS PROPHYLAXIS
  3. BAYASPIRIN 100 MG [Suspect]
     Active Substance: ASPIRIN
     Indication: CORONARY ARTERY STENOSIS
     Dosage: 100 MG, DAILY DOSE
     Route: 048
     Dates: start: 20060718
  4. PLAVIX [Interacting]
     Active Substance: CLOPIDOGREL BISULFATE
     Indication: CORONARY ARTERIAL STENT INSERTION
     Dosage: 75 MG, DAILY DOSE
     Route: 048
     Dates: start: 20140613

REACTIONS (4)
  - Haemothorax [None]
  - Drug interaction [None]
  - Post procedural haemorrhage [None]
  - Lung neoplasm malignant [Fatal]

NARRATIVE: CASE EVENT DATE: 20140719
